FAERS Safety Report 25936641 (Version 1)
Quarter: 2025Q4

REPORT INFORMATION
  Report Type: Spontaneous
  Country: US (occurrence: US)
  Receive Date: 20251017
  Receipt Date: 20251017
  Transmission Date: 20260118
  Serious: Yes (Death)
  Sender: EVOKE PHARMA, INC.
  Company Number: US-EVOKE PHARMA, INC.-2025EVO000131

PATIENT
  Sex: Male

DRUGS (1)
  1. GIMOTI [Suspect]
     Active Substance: METOCLOPRAMIDE HYDROCHLORIDE
     Indication: Product used for unknown indication
     Dosage: UNK
     Route: 045

REACTIONS (1)
  - Death [Fatal]
